FAERS Safety Report 5587242-7 (Version None)
Quarter: 2008Q1

REPORT INFORMATION
  Report Type: 
  Country: None (occurrence: None)
  Receive Date: 20080110
  Receipt Date: 20080104
  Transmission Date: 20080703
  Serious: Yes (Disabling, Other)
  Sender: FDA-Public Use
  Company Number: DE-PFIZER INC-2007106893

PATIENT
  Sex: Female
  Weight: 71 kg

DRUGS (4)
  1. CAMPTO [Suspect]
     Indication: COLON CANCER METASTATIC
  2. CETUXIMAB [Concomitant]
  3. DEXAMETHASONE TAB [Concomitant]
  4. ATROPIN [Concomitant]

REACTIONS (3)
  - DYSPNOEA [None]
  - INTERSTITIAL LUNG DISEASE [None]
  - SKIN REACTION [None]
